FAERS Safety Report 5592381-0 (Version None)
Quarter: 2008Q1

REPORT INFORMATION
  Report Type: 
  Country: None (occurrence: None)
  Receive Date: 20080115
  Receipt Date: 20080105
  Transmission Date: 20080703
  Serious: Yes (Hospitalization, Other)
  Sender: FDA-Public Use
  Company Number: DZ-PFIZER INC-2007108323

PATIENT
  Sex: Female

DRUGS (1)
  1. TAHOR [Suspect]
     Indication: HYPERLIPIDAEMIA
     Route: 048

REACTIONS (3)
  - JAUNDICE [None]
  - MYALGIA [None]
  - WEIGHT DECREASED [None]
